FAERS Safety Report 6488226-7 (Version None)
Quarter: 2009Q4

REPORT INFORMATION
  Report Type: 
  Country: None (occurrence: None)
  Receive Date: 20091210
  Receipt Date: 20091204
  Transmission Date: 20100525
  Serious: Yes (Life-Threatening, Hospitalization)
  Sender: FDA-Public Use
  Company Number: B0611458A

PATIENT
  Sex: Female

DRUGS (5)
  1. AUGMENTIN '125' [Suspect]
     Indication: NEUTROPENIA
     Dosage: 2G SINGLE DOSE
     Route: 042
     Dates: start: 20090825, end: 20090825
  2. PARACETAMOL [Concomitant]
     Indication: PAIN
     Route: 048
  3. SPASFON [Concomitant]
     Indication: PAIN
     Route: 048
  4. HYPNOVEL [Concomitant]
     Route: 042
     Dates: start: 20090825
  5. DIPRIVAN [Concomitant]
     Route: 042
     Dates: start: 20090825, end: 20090825

REACTIONS (5)
  - ANAPHYLACTIC SHOCK [None]
  - CIRCULATORY COLLAPSE [None]
  - GENERALISED ERYTHEMA [None]
  - HYPOCAPNIA [None]
  - TRYPTASE INCREASED [None]
